FAERS Safety Report 15956966 (Version 4)
Quarter: 2020Q1

REPORT INFORMATION
  Report Type: Spontaneous
  Country: US (occurrence: US)
  Receive Date: 20190213
  Receipt Date: 20200306
  Transmission Date: 20200409
  Serious: Yes (Hospitalization, Other)
  Sender: FDA-Public Use
  Company Number: US-PFIZER INC-2019059893

PATIENT
  Age: 72 Year
  Sex: Male
  Weight: 104 kg

DRUGS (9)
  1. CETIRIZINE [Concomitant]
     Active Substance: CETIRIZINE HYDROCHLORIDE
     Indication: SEASONAL ALLERGY
     Dosage: UNK, AS NEEDED
  2. VITAMIN B12 [Concomitant]
     Active Substance: CYANOCOBALAMIN
     Dosage: UNK, 1X/DAY
     Route: 060
  3. VITAMIN C [Concomitant]
     Active Substance: ASCORBIC ACID
     Indication: VITAMIN SUPPLEMENTATION
     Dosage: 1000 MG, DAILY
     Route: 048
  4. CELEBREX [Suspect]
     Active Substance: CELECOXIB
     Indication: ARTHRITIS
     Dosage: 200 MG, ONCE DAILY
  5. LISINOPRIL. [Concomitant]
     Active Substance: LISINOPRIL
     Indication: HYPERTENSION
     Dosage: UNK, 1X/DAY
     Route: 048
     Dates: start: 20130612
  6. VITAMIN C [Concomitant]
     Active Substance: ASCORBIC ACID
     Dosage: UNK
     Route: 048
     Dates: start: 201204
  7. CENTRUM SILVER +50 [Concomitant]
     Dosage: UNK
     Route: 048
     Dates: start: 201204
  8. CELEBREX [Suspect]
     Active Substance: CELECOXIB
     Dosage: 200 MG, ONCE DAILY
     Dates: start: 20130410
  9. CENTRUM SILVER +50 [Concomitant]
     Indication: VITAMIN SUPPLEMENTATION
     Dosage: 1 DF, 1X/DAY
     Route: 048

REACTIONS (17)
  - Feeling abnormal [Recovered/Resolved]
  - Overweight [Unknown]
  - Asthenia [Recovered/Resolved]
  - Sinusitis [Recovered/Resolved]
  - Alopecia [Recovered/Resolved]
  - Eating disorder [Recovered/Resolved]
  - Insomnia [Recovered/Resolved]
  - Impaired healing [Recovered/Resolved]
  - Dyspepsia [Recovered/Resolved]
  - Inflammation [Recovered/Resolved]
  - Chromaturia [Recovered/Resolved]
  - Jaundice [Recovered/Resolved]
  - Pain [Recovered/Resolved]
  - Blood glucose decreased [Recovered/Resolved]
  - Pancreatic carcinoma [Recovered/Resolved]
  - Diabetes mellitus [Recovered/Resolved]
  - Weight decreased [Unknown]

NARRATIVE: CASE EVENT DATE: 201211
